FAERS Safety Report 8933791 (Version 1)
Quarter: 2012Q4

REPORT INFORMATION
  Report Type: Report from Study
  Country: US (occurrence: US)
  Receive Date: 20121129
  Receipt Date: 20121129
  Transmission Date: 20130627
  Serious: Yes (Other)
  Sender: FDA-Public Use
  Company Number: US-PURDUE-USA-2012-0096288

PATIENT
  Age: 78 Year
  Sex: Male

DRUGS (1)
  1. OXYCONTIN (NDA 22-272) [Suspect]
     Indication: COLON CANCER METASTATIC
     Dosage: 20 mg, q12h

REACTIONS (2)
  - Malignant neoplasm progression [Unknown]
  - Pain [Unknown]
